FAERS Safety Report 7062573-2 (Version None)
Quarter: 2010Q4

REPORT INFORMATION
  Report Type: 
  Country: None (occurrence: None)
  Receive Date: 20101026
  Receipt Date: 20101019
  Transmission Date: 20110411
  Serious: Yes (Hospitalization, Other)
  Sender: FDA-Public Use
  Company Number: US-WYE-H18263310

PATIENT
  Sex: Female
  Weight: 63.56 kg

DRUGS (3)
  1. PREMARIN [Suspect]
     Indication: BLADDER DISORDER
     Route: 067
     Dates: start: 20080101, end: 20091001
  2. PREMARIN [Suspect]
     Indication: POLLAKIURIA
     Dosage: ^USED ONLY OCCASIONALLY^
     Route: 067
     Dates: start: 20091001, end: 20100801
  3. PREMARIN [Suspect]
     Indication: PRODUCT USED FOR UNKNOWN INDICATION
     Route: 048
     Dates: start: 19900101, end: 20050101

REACTIONS (6)
  - AORTIC ANEURYSM [None]
  - BLADDER DISORDER [None]
  - EXPIRED DRUG ADMINISTERED [None]
  - HIP ARTHROPLASTY [None]
  - OSTEOPOROSIS [None]
  - POLLAKIURIA [None]
